FAERS Safety Report 10280779 (Version 3)
Quarter: 2014Q3

REPORT INFORMATION
  Report Type: Spontaneous
  Country: DE (occurrence: None)
  Receive Date: 20140702
  Receipt Date: 20140714
  Transmission Date: 20150326
  Serious: Yes (Death, Congenital Anomaly, Other)
  Sender: FDA-Public Use
  Company Number: AUR-APL-2014-06873

PATIENT
  Sex: Male
  Weight: 2.2 kg

DRUGS (4)
  1. VALDOXAN [Suspect]
     Active Substance: AGOMELATINE
     Indication: ANXIETY DISORDER
     Route: 064
     Dates: start: 20130522, end: 20140123
  2. RAMIPRIL. [Suspect]
     Active Substance: RAMIPRIL
     Indication: HYPERTENSION
     Route: 064
  3. CELESTAN [Concomitant]
     Active Substance: BETAMETHASONE
  4. HCT (HYDROCHLOROTHIAZIDE) [Suspect]
     Active Substance: HYDROCHLOROTHIAZIDE
     Indication: HYPERTENSION
     Route: 064

REACTIONS (17)
  - Cerebral calcification [None]
  - Patent ductus arteriosus [None]
  - Meningomyelocele [None]
  - Maternal drugs affecting foetus [None]
  - Congenital diaphragmatic hernia [None]
  - Spina bifida [None]
  - Premature baby [None]
  - Apgar score low [None]
  - Foetal exposure during pregnancy [None]
  - Laryngeal cleft [None]
  - Neonatal respiratory distress syndrome [None]
  - Caesarean section [None]
  - Cryptorchism [None]
  - Congenital pulmonary hypertension [None]
  - Heart disease congenital [None]
  - Septum pellucidum agenesis [None]
  - Death neonatal [None]

NARRATIVE: CASE EVENT DATE: 20140123
